FAERS Safety Report 22605722 (Version 1)
Quarter: 2023Q2

REPORT INFORMATION
  Report Type: Spontaneous
  Country: DE (occurrence: None)
  Receive Date: 20230615
  Receipt Date: 20230615
  Transmission Date: 20230721
  Serious: Yes (Life-Threatening)
  Sender: FDA-Public Use
  Company Number: 2023A135505

PATIENT
  Age: 71 Year
  Sex: Male
  Weight: 89 kg

DRUGS (11)
  1. TICAGRELOR [Suspect]
     Active Substance: TICAGRELOR
     Indication: Coronary artery disease
     Dosage: 1-0-1-0
     Route: 048
     Dates: start: 20221129
  2. METOPROLOL [Concomitant]
     Active Substance: METOPROLOL
     Dosage: 1-0-0-0
  3. PANTOPRAZOLE SODIUM [Concomitant]
     Active Substance: PANTOPRAZOLE SODIUM
     Dosage: 1-0-0-0
  4. ASPIRIN [Concomitant]
     Active Substance: ASPIRIN
     Dosage: 1-0-0-0
  5. LERCANIDIPINE [Concomitant]
     Active Substance: LERCANIDIPINE
     Dosage: 0-0-1-0
  6. CANDESARTAN [Concomitant]
     Active Substance: CANDESARTAN
     Dosage: 1-0-0-0
  7. TORSEMIDE [Concomitant]
     Active Substance: TORSEMIDE
     Dosage: 1-0-0-0
  8. METAMIZOL [Concomitant]
     Active Substance: METAMIZOLE SODIUM
     Dosage: 500 MG FOR PAIN
  9. NAPROXEN [Concomitant]
     Active Substance: NAPROXEN
     Dosage: 500MG IF NEEDED
  10. ROSUVASTATIN [Concomitant]
     Active Substance: ROSUVASTATIN
     Dosage: 0-0-1-0
  11. EZETIMIBE [Concomitant]
     Active Substance: EZETIMIBE
     Dosage: 0-0-1-0

REACTIONS (1)
  - Immune thrombocytopenia [Unknown]

NARRATIVE: CASE EVENT DATE: 20230419
